FAERS Safety Report 5304298-7 (Version None)
Quarter: 2007Q2

REPORT INFORMATION
  Report Type: 
  Country: None (occurrence: None)
  Receive Date: 20070423
  Receipt Date: 20070419
  Transmission Date: 20071010
  Serious: Yes (Death)
  Sender: FDA-Public Use
  Company Number: PHBS2007RU03303

PATIENT
  Age: 77 Year
  Sex: Male

DRUGS (9)
  1. EXELON [Suspect]
     Indication: DEMENTIA ALZHEIMER'S TYPE
     Dosage: 3 MG/D
     Route: 048
     Dates: start: 20061210
  2. EXELON [Suspect]
     Dosage: 6 MG/D
     Route: 048
  3. EXELON [Suspect]
     Dosage: 3 MG/D
     Route: 048
  4. ZOCOR [Concomitant]
     Route: 065
  5. SIOFOR [Concomitant]
     Route: 065
  6. BETALOC [Concomitant]
     Route: 065
  7. OMNIC [Concomitant]
     Route: 065
  8. PENTOXIFYLLINE [Concomitant]
     Route: 065
  9. ASPIRIN [Concomitant]
     Route: 065

REACTIONS (4)
  - ANOREXIA [None]
  - DEATH [None]
  - DIZZINESS [None]
  - VOMITING [None]
